FAERS Safety Report 10980357 (Version 2)
Quarter: 2015Q2

REPORT INFORMATION
  Report Type: Spontaneous
  Country: US (occurrence: US)
  Receive Date: 20150402
  Receipt Date: 20150525
  Transmission Date: 20150821
  Serious: No
  Sender: FDA-Public Use
  Company Number: US-JNJFOC-20130803427

PATIENT
  Sex: Female
  Weight: 59.88 kg

DRUGS (5)
  1. COQ10 [Concomitant]
     Active Substance: UBIDECARENONE
     Indication: NUTRITIONAL SUPPLEMENTATION
     Dosage: ONE IN AM.
     Route: 065
     Dates: start: 2008
  2. IMODIUM MULTI-SYMPTOM RELIEF [Suspect]
     Active Substance: DIMETHICONE\LOPERAMIDE HYDROCHLORIDE
     Route: 048
  3. OMEGA 3 [Concomitant]
     Active Substance: OMEGA-3 FATTY ACIDS
     Indication: NUTRITIONAL SUPPLEMENTATION
     Dosage: ONE IN AM.
     Route: 065
     Dates: start: 2008
  4. CENTRUM NOS [Concomitant]
     Indication: NUTRITIONAL SUPPLEMENTATION
     Dosage: ONE IN AM.
     Route: 065
     Dates: start: 2008
  5. IMODIUM MULTI-SYMPTOM RELIEF [Suspect]
     Active Substance: DIMETHICONE\LOPERAMIDE HYDROCHLORIDE
     Indication: DIARRHOEA
     Dosage: 1 TABLET EVERY 6 HOURS
     Route: 048
     Dates: end: 20130806

REACTIONS (5)
  - Product packaging issue [Unknown]
  - Dysgeusia [Unknown]
  - Drug ineffective [Unknown]
  - Product solubility abnormal [Unknown]
  - Muscle spasms [Unknown]
